FAERS Safety Report 24981610 (Version 1)
Quarter: 2025Q1

REPORT INFORMATION
  Report Type: Spontaneous
  Country: SK (occurrence: SK)
  Receive Date: 20250218
  Receipt Date: 20250218
  Transmission Date: 20250408
  Serious: Yes (Other)
  Sender: MYLAN
  Company Number: None

PATIENT
  Age: 20 Year
  Sex: Male
  Weight: 64 kg

DRUGS (1)
  1. CLOZAPINE [Suspect]
     Active Substance: CLOZAPINE
     Indication: Autism spectrum disorder
     Dosage: 1 DOSAGE FORM, QD (1-0-0)
     Route: 048
     Dates: start: 2023, end: 2024

REACTIONS (10)
  - Pyelocaliectasis [Recovering/Resolving]
  - Renal impairment [Recovering/Resolving]
  - Urinary retention [Recovering/Resolving]
  - Sinus tachycardia [Recovering/Resolving]
  - Lipids increased [Recovering/Resolving]
  - Blood uric acid increased [Recovering/Resolving]
  - Blood pressure increased [Recovering/Resolving]
  - Urinary incontinence [Recovering/Resolving]
  - Blood creatinine increased [Recovering/Resolving]
  - Blood glucose increased [Recovering/Resolving]
